FAERS Safety Report 9695140 (Version 1)
Quarter: 2013Q4

REPORT INFORMATION
  Report Type: Spontaneous
  Country: US (occurrence: US)
  Receive Date: 20131119
  Receipt Date: 20131119
  Transmission Date: 20140711
  Serious: Yes (Hospitalization, Other)
  Sender: FDA-Public Use
  Company Number: US-OTSUKA-US-2013-12130

PATIENT
  Age: 44 Year
  Sex: Male

DRUGS (3)
  1. ABILIFY MAINTENA [Suspect]
     Indication: SCHIZOPHRENIA
     Dosage: 400 MG MILLIGRAM(S), UNK
     Dates: start: 201310
  2. ARIPIPRAZOLE [Concomitant]
     Indication: SCHIZOPHRENIA
  3. COGENTIN [Concomitant]
     Dosage: 2 MG MILLIGRAM(S), TID
     Route: 048

REACTIONS (6)
  - Psychotic behaviour [Unknown]
  - Hallucination [Unknown]
  - Blood pressure decreased [Unknown]
  - Abnormal behaviour [Unknown]
  - Agitation [Unknown]
  - Hyperhidrosis [Unknown]
